FAERS Safety Report 7972459-4 (Version None)
Quarter: 2011Q4

REPORT INFORMATION
  Report Type: 
  Country: None (occurrence: None)
  Receive Date: 20111213
  Receipt Date: 20081219
  Transmission Date: 20120403
  Serious: No
  Sender: FDA-Public Use
  Company Number: 2008BI034395

PATIENT
  Age: 38 Year
  Sex: Male

DRUGS (3)
  1. TYSABRI [Suspect]
     Indication: MULTIPLE SCLEROSIS
     Route: 042
     Dates: start: 20081205
  2. HERBAL MEDICATION [NOS] [Concomitant]
     Indication: CONSTIPATION
  3. PRESCRIPTION MEDICATION [NOS] [Concomitant]
     Indication: CONSTIPATION

REACTIONS (9)
  - MOBILITY DECREASED [None]
  - RESPIRATORY TRACT CONGESTION [None]
  - FATIGUE [None]
  - DROOLING [None]
  - DYSSTASIA [None]
  - DYSARTHRIA [None]
  - PRURITUS [None]
  - FLUSHING [None]
  - ASTHENIA [None]
